FAERS Safety Report 14170356 (Version 2)
Quarter: 2017Q4

REPORT INFORMATION
  Report Type: Other
  Country: US (occurrence: US)
  Receive Date: 20171108
  Receipt Date: 20171215
  Transmission Date: 20180321
  Serious: Yes (Other)
  Sender: FDA-Public Use
  Company Number: US-INTERCEPT-PMOCA2017000966

PATIENT

DRUGS (2)
  1. OCALIVA [Suspect]
     Active Substance: OBETICHOLIC ACID
     Indication: BILIARY CIRRHOSIS PRIMARY
     Dosage: 5 MG, QW
     Route: 048
     Dates: start: 201707, end: 20170920
  2. URSODIOL. [Concomitant]
     Active Substance: URSODIOL

REACTIONS (8)
  - Blood bilirubin increased [Recovered/Resolved]
  - Hepatic enzyme abnormal [Unknown]
  - Decreased appetite [Not Recovered/Not Resolved]
  - Pruritus [Not Recovered/Not Resolved]
  - Model for end stage liver disease score increased [Unknown]
  - Drug ineffective [Not Recovered/Not Resolved]
  - Hepatic failure [Unknown]
  - Fatigue [Not Recovered/Not Resolved]

NARRATIVE: CASE EVENT DATE: 2017
